FAERS Safety Report 10961641 (Version 1)
Quarter: 2015Q1

REPORT INFORMATION
  Report Type: Spontaneous
  Country: US (occurrence: US)
  Receive Date: 20150327
  Receipt Date: 20150327
  Transmission Date: 20150721
  Serious: Yes (Other)
  Sender: FDA-Public Use
  Company Number: US-GILEAD-2015-0144170

PATIENT
  Age: 67 Year
  Sex: Male
  Weight: 82 kg

DRUGS (11)
  1. TRAMADOL [Concomitant]
     Active Substance: TRAMADOL
  2. TESTOSTERONE. [Concomitant]
     Active Substance: TESTOSTERONE
  3. RIBAVIRIN. [Suspect]
     Active Substance: RIBAVIRIN
     Indication: CHRONIC HEPATITIS C
     Dosage: 600 MG, BID
     Route: 065
     Dates: start: 20150226
  4. ASPIRIN                            /00002701/ [Concomitant]
     Active Substance: ASPIRIN
  5. INSULIN ASPART [Concomitant]
     Active Substance: INSULIN ASPART
  6. PANTOPRAZOLE [Concomitant]
     Active Substance: PANTOPRAZOLE SODIUM
  7. INSULIN GLARGINE [Concomitant]
     Active Substance: INSULIN GLARGINE
  8. TACROLIMUS. [Concomitant]
     Active Substance: TACROLIMUS
  9. HARVONI [Suspect]
     Active Substance: LEDIPASVIR\SOFOSBUVIR
     Dosage: UNK
     Route: 065
     Dates: start: 20150318
  10. HARVONI [Suspect]
     Active Substance: LEDIPASVIR\SOFOSBUVIR
     Indication: CHRONIC HEPATITIS C
     Dosage: UNK, QD
     Route: 065
     Dates: start: 20150226, end: 20150317
  11. SENNA                              /00571901/ [Concomitant]

REACTIONS (4)
  - Alanine aminotransferase increased [Unknown]
  - Blood bilirubin increased [Unknown]
  - Blood alkaline phosphatase increased [Unknown]
  - Aspartate aminotransferase increased [Unknown]
